FAERS Safety Report 6569543-9 (Version None)
Quarter: 2010Q1

REPORT INFORMATION
  Report Type: 
  Country: None (occurrence: None)
  Receive Date: 20100204
  Receipt Date: 20100128
  Transmission Date: 20100710
  Serious: Yes (Life-Threatening, Other)
  Sender: FDA-Public Use
  Company Number: FR-BRISTOL-MYERS SQUIBB COMPANY-14954507

PATIENT
  Age: 77 Year
  Sex: Female
  Weight: 100 kg

DRUGS (6)
  1. COUMADIN [Suspect]
     Indication: THROMBOPHLEBITIS
     Route: 048
     Dates: start: 20091110, end: 20091208
  2. INNOHEP [Suspect]
     Indication: THROMBOPHLEBITIS
     Dosage: 0.7 M.L DAILY
  3. PRETERAX [Concomitant]
     Dosage: 1 DF= 1 TABS
  4. INIPOMP [Concomitant]
  5. TARDYFERON [Concomitant]
     Dosage: 1 DF= 1 CAPS
  6. LYRICA [Concomitant]
     Dosage: 1 DF= 1 CAPS:100 UNITS NOS

REACTIONS (11)
  - ABDOMINAL WALL HAEMATOMA [None]
  - FLUID OVERLOAD [None]
  - GASTRIC ULCER [None]
  - HAEMORRHAGIC ANAEMIA [None]
  - HEART RATE DECREASED [None]
  - HYPOTENSION [None]
  - INTERNATIONAL NORMALISED RATIO INCREASED [None]
  - LARYNGEAL DYSPNOEA [None]
  - OESOPHAGEAL ULCER [None]
  - SHOCK HAEMORRHAGIC [None]
  - SOMNOLENCE [None]
